FAERS Safety Report 19094985 (Version 6)
Quarter: 2021Q3

REPORT INFORMATION
  Report Type: Report from Study
  Country: None (occurrence: CA)
  Receive Date: 20210405
  Receipt Date: 20210907
  Transmission Date: 20211014
  Serious: Yes (Other)
  Sender: FDA-Public Use
  Company Number: CA-ABBVIE-21K-028-3842381-00

PATIENT
  Sex: Female

DRUGS (1)
  1. SKYRIZI [Suspect]
     Active Substance: RISANKIZUMAB-RZAA
     Indication: PSORIASIS
     Route: 058
     Dates: start: 20200708, end: 20210414

REACTIONS (3)
  - Transitional cell carcinoma [Not Recovered/Not Resolved]
  - General physical health deterioration [Unknown]
  - Infection [Recovering/Resolving]

NARRATIVE: CASE EVENT DATE: 2021
